FAERS Safety Report 6668800-5 (Version None)
Quarter: 2010Q2

REPORT INFORMATION
  Report Type: 
  Country: None (occurrence: None)
  Receive Date: 20100329
  Receipt Date: 20100315
  Transmission Date: 20101027
  Serious: Yes (Life-Threatening)
  Sender: FDA-Public Use
  Company Number: GAM-043-10-AU

PATIENT
  Age: 41 Year
  Sex: Female

DRUGS (6)
  1. OCTAGAM [Suspect]
     Indication: LYMPHOMA
     Dosage: 24 G I.V.
     Route: 042
     Dates: start: 20100226, end: 20100226
  2. ACETAMINOPHEN [Concomitant]
  3. VANCOMYCIN [Concomitant]
  4. MORPHINE [Concomitant]
  5. PIPERACILLIN AND TAZOBACTAM [Suspect]
  6. OXYCODONE HCL [Concomitant]

REACTIONS (7)
  - CHILLS [None]
  - FLUSHING [None]
  - HEADACHE [None]
  - HEART RATE INCREASED [None]
  - INFUSION RELATED REACTION [None]
  - OXYGEN SATURATION DECREASED [None]
  - PYREXIA [None]
